FAERS Safety Report 4530444-9 (Version None)
Quarter: 2004Q4

REPORT INFORMATION
  Report Type: 
  Country: None (occurrence: None)
  Receive Date: 20041215
  Receipt Date: 20041202
  Transmission Date: 20050328
  Serious: Yes (Other)
  Sender: FDA-Public Use
  Company Number: 2004102820

PATIENT
  Age: 30 Year
  Sex: Female
  Weight: 58.9676 kg

DRUGS (2)
  1. LISTERINE (MENTHOL, METHYL SALICYLATE, EUCALYPTOL, THYMOL) [Suspect]
     Dosage: BID, ORAL
     Route: 048
     Dates: end: 20041001
  2. PRENATAL VITAMINS (ASCORIC ACID, BIOTIN, MINERALS NOS, NICOTINIC ACID, [Concomitant]

REACTIONS (3)
  - DRUG EXPOSURE DURING PREGNANCY [None]
  - GINGIVITIS [None]
  - NEPHROLITHIASIS [None]
